FAERS Safety Report 4674158-3 (Version None)
Quarter: 2005Q2

REPORT INFORMATION
  Report Type: 
  Country: None (occurrence: None)
  Receive Date: 20050524
  Receipt Date: 20050504
  Transmission Date: 20051028
  Serious: Yes (Hospitalization)
  Sender: FDA-Public Use
  Company Number: OMPQ-PR-0505S-0704

PATIENT
  Age: 56 Year
  Sex: Female

DRUGS (2)
  1. OMNIPAQUE 140 [Suspect]
     Indication: CORONARY ARTERY DISEASE
     Dosage: 100 ML, SINGLE DOSE
     Dates: start: 20050504, end: 20050504
  2. LASIX [Concomitant]

REACTIONS (3)
  - BLISTER [None]
  - EXTRAVASATION [None]
  - SKIN EXFOLIATION [None]
